FAERS Safety Report 20547565 (Version 1)
Quarter: 2022Q1

REPORT INFORMATION
  Report Type: Spontaneous
  Country: US (occurrence: US)
  Receive Date: 20220303
  Receipt Date: 20220303
  Transmission Date: 20220423
  Serious: No
  Sender: FDA-Public Use
  Company Number: US-GLENMARK PHARMACEUTICALS-2022GMK069786

PATIENT

DRUGS (2)
  1. OLMESARTAN MEDOXOMIL [Suspect]
     Active Substance: OLMESARTAN MEDOXOMIL
     Indication: Product used for unknown indication
     Dosage: 20 MILLIGRAM, BID (SINCE LAST 20 YEARS)
     Route: 048
  2. OLMESARTAN MEDOXOMIL [Suspect]
     Active Substance: OLMESARTAN MEDOXOMIL
     Dosage: 20 MILLIGRAM, BID (COMPLAINT BATCH)
     Route: 048

REACTIONS (5)
  - Product storage error [Unknown]
  - Product administration error [Unknown]
  - Product odour abnormal [Unknown]
  - Product quality issue [Unknown]
  - No adverse event [Unknown]
